FAERS Safety Report 6966795 (Version 2)
Quarter: 2014Q3

REPORT INFORMATION
  Report Type: Spontaneous
  Country: US (occurrence: None)
  Receive Date: 20090402
  Receipt Date: 20140926
  Transmission Date: 20150326
  Serious: Yes (Other)
  Sender: FDA-Public Use
  Company Number: 2009S1002576

PATIENT
  Age: 63 Year
  Sex: Female

DRUGS (7)
  1. GLUCOPHAGE [Concomitant]
     Active Substance: METFORMIN HYDROCHLORIDE
  2. LISINOPRIL. [Concomitant]
     Active Substance: LISINOPRIL
  3. GLIPIZIDE. [Concomitant]
     Active Substance: GLIPIZIDE
  4. JANUVIA [Concomitant]
     Active Substance: SITAGLIPTIN PHOSPHATE
  5. PHOSPHO-SODA [Suspect]
     Active Substance: SODIUM PHOSPHATE, DIBASIC\SODIUM PHOSPHATE, MONOBASIC
     Indication: COLONOSCOPY
     Dosage: TOTAL; PO
     Route: 048
     Dates: start: 20071029, end: 20071029
  6. ZOCOR [Concomitant]
     Active Substance: SIMVASTATIN
  7. ZOLOFT [Concomitant]
     Active Substance: SERTRALINE HYDROCHLORIDE

REACTIONS (14)
  - Acute phosphate nephropathy [None]
  - Anaemia [None]
  - Renal failure acute [None]
  - Abdominal pain [None]
  - Nausea [None]
  - Renal failure chronic [None]
  - Gastritis [None]
  - Diarrhoea [None]
  - Vitamin B12 deficiency [None]
  - Renal tubular necrosis [None]
  - Nephrogenic anaemia [None]
  - Toxicity to various agents [None]
  - Hyperphosphataemia [None]
  - Dyspepsia [None]

NARRATIVE: CASE EVENT DATE: 200710
